FAERS Safety Report 9921635 (Version 1)
Quarter: 2014Q1

REPORT INFORMATION
  Report Type: Spontaneous
  Country: US (occurrence: US)
  Receive Date: 20140225
  Receipt Date: 20140225
  Transmission Date: 20141002
  Serious: Yes (Other)
  Sender: FDA-Public Use
  Company Number: US-ASTRAZENECA-2014SE11642

PATIENT
  Age: 53 Year
  Sex: Female
  Weight: 106.1 kg

DRUGS (9)
  1. NEXIUM [Suspect]
     Indication: GASTROOESOPHAGEAL REFLUX DISEASE
     Route: 048
     Dates: start: 2011, end: 2012
  2. NEXIUM [Suspect]
     Indication: GASTROOESOPHAGEAL REFLUX DISEASE
     Route: 048
     Dates: start: 201309, end: 20140115
  3. CYMBALTA [Concomitant]
     Indication: ANTIDEPRESSANT THERAPY
  4. CYMBALTA [Concomitant]
     Indication: NEURALGIA
  5. CYMBALTA [Concomitant]
     Indication: PAIN
  6. XANAX [Concomitant]
     Indication: ANTIDEPRESSANT THERAPY
  7. FLEXERIL [Concomitant]
     Indication: ARTHRITIS
  8. PERCOCET [Concomitant]
     Indication: PAIN
     Dosage: 10/325 PRN
  9. LYRICA [Concomitant]
     Indication: NERVE INJURY

REACTIONS (9)
  - Osteoarthritis [Unknown]
  - Hypoaesthesia [Unknown]
  - Gastrooesophageal reflux disease [Unknown]
  - Chest discomfort [Unknown]
  - Hypophagia [Unknown]
  - Activities of daily living impaired [Unknown]
  - Aphagia [Unknown]
  - Abdominal discomfort [Unknown]
  - Intentional drug misuse [Unknown]
